FAERS Safety Report 6343320-6 (Version None)
Quarter: 2009Q3

REPORT INFORMATION
  Report Type: 
  Country: None (occurrence: None)
  Receive Date: 20090908
  Receipt Date: 20090828
  Transmission Date: 20100115
  Serious: Yes (Other)
  Sender: FDA-Public Use
  Company Number: PHHY2009CA34943

PATIENT
  Sex: Female

DRUGS (8)
  1. ACLASTA [Suspect]
     Indication: OSTEOPOROSIS POSTMENOPAUSAL
     Dosage: 5 MG/100 ML ONE DOSE
     Dates: start: 20080715
  2. CYCLOBENZAPRINE [Concomitant]
     Dosage: UNK
     Dates: start: 20090623
  3. ATIVAN [Concomitant]
     Dosage: UNK
     Dates: start: 20090630
  4. SPIRIVA [Concomitant]
     Dosage: UNK
     Dates: start: 20090630
  5. AVELOX [Concomitant]
     Dosage: UNK
  6. ACETAMINOPHEN W/ CODEINE [Concomitant]
     Dosage: 1-2 TABLETS DAILY
  7. RANITIDINE [Concomitant]
     Dosage: UNK
  8. ASAPHEN [Concomitant]

REACTIONS (4)
  - FALL [None]
  - LIMB INJURY [None]
  - TENDON DISORDER [None]
  - WRIST FRACTURE [None]
